FAERS Safety Report 8503467-2 (Version None)
Quarter: 2012Q3

REPORT INFORMATION
  Report Type: 
  Country: None (occurrence: None)
  Receive Date: 20120711
  Receipt Date: 20120705
  Transmission Date: 20120928
  Serious: Yes (Hospitalization)
  Sender: FDA-Public Use
  Company Number: US-GLAXOSMITHKLINE-A0983408A

PATIENT
  Age: 64 Year
  Sex: Female

DRUGS (5)
  1. VITAMIN D [Concomitant]
  2. CHEMOTHERAPY [Concomitant]
  3. VENTOLIN [Suspect]
     Indication: ASTHMA
     Dosage: 2PUFF AS REQUIRED
     Route: 055
     Dates: start: 20120502
  4. PRILOSEC [Concomitant]
  5. SYMBICORT [Concomitant]

REACTIONS (4)
  - APHONIA [None]
  - DYSPNOEA [None]
  - DRUG ADMINISTRATION ERROR [None]
  - PRODUCT QUALITY ISSUE [None]
